FAERS Safety Report 8532414 (Version 2)
Quarter: 2014Q2

REPORT INFORMATION
  Report Type: Spontaneous
  Country: US (occurrence: US)
  Receive Date: 20120426
  Receipt Date: 20140516
  Transmission Date: 20141212
  Serious: Yes (Death, Hospitalization)
  Sender: FDA-Public Use
  Company Number: US-GLAXOSMITHKLINE-A0787911A

PATIENT
  Age: 70 Year
  Sex: Female
  Weight: 65.9 kg

DRUGS (1)
  1. AVANDIA [Suspect]
     Indication: TYPE 2 DIABETES MELLITUS
     Dosage: 4MG PER DAY
     Route: 048
     Dates: start: 200212, end: 20070720

REACTIONS (3)
  - Pneumonia [Fatal]
  - Myocardial infarction [Unknown]
  - Transient ischaemic attack [Unknown]
